FAERS Safety Report 4953685-5 (Version None)
Quarter: 2006Q1

REPORT INFORMATION
  Report Type: 
  Country: None (occurrence: None)
  Receive Date: 20060324
  Receipt Date: 20051014
  Transmission Date: 20060701
  Serious: Yes (Death, Hospitalization, Other)
  Sender: FDA-Public Use
  Company Number: US-MERCK-0510USA07530

PATIENT
  Age: 81 Year
  Sex: Male
  Weight: 91 kg

DRUGS (2)
  1. VIOXX [Suspect]
     Indication: GINGIVAL PAIN
     Route: 048
     Dates: start: 19990101, end: 20031014
  2. VIOXX [Suspect]
     Indication: SHOULDER PAIN
     Route: 048
     Dates: start: 19990101, end: 20031014

REACTIONS (4)
  - CARDIAC ARREST [None]
  - DYSPNOEA [None]
  - MYOCARDIAL INFARCTION [None]
  - PUPIL FIXED [None]
